FAERS Safety Report 5264697-9 (Version None)
Quarter: 2007Q1

REPORT INFORMATION
  Report Type: 
  Country: None (occurrence: None)
  Receive Date: 20070314
  Receipt Date: 20070305
  Transmission Date: 20070707
  Serious: Yes (Death, Other)
  Sender: FDA-Public Use
  Company Number: PHBS2007JP03327

PATIENT
  Age: 44 Year
  Sex: Male

DRUGS (4)
  1. CYCLOSPORINE [Suspect]
     Indication: ALLOGENIC BONE MARROW TRANSPLANTATION THERAPY
     Route: 065
  2. METHOTREXATE [Concomitant]
     Indication: ALLOGENIC BONE MARROW TRANSPLANTATION THERAPY
  3. BUSULFAN [Concomitant]
  4. CYCLOPHOSPHAMIDE [Concomitant]

REACTIONS (9)
  - CYTOMEGALOVIRUS VIRAEMIA [None]
  - DISSEMINATED TUBERCULOSIS [None]
  - GASTROINTESTINAL HAEMORRHAGE [None]
  - GRAFT VERSUS HOST DISEASE [None]
  - HISTIOCYTOSIS HAEMATOPHAGIC [None]
  - HUMAN HERPESVIRUS 6 INFECTION [None]
  - MULTI-ORGAN FAILURE [None]
  - PYREXIA [None]
  - THROMBOTIC MICROANGIOPATHY [None]
